FAERS Safety Report 12487801 (Version 2)
Quarter: 2016Q3

REPORT INFORMATION
  Report Type: Report from Study
  Country: DE (occurrence: DE)
  Receive Date: 20160622
  Receipt Date: 20160810
  Transmission Date: 20161109
  Serious: Yes (Other)
  Sender: FDA-Public Use
  Company Number: PHHY2016DE084761

PATIENT
  Sex: Female
  Weight: 69 kg

DRUGS (10)
  1. COSENTYX [Suspect]
     Active Substance: SECUKINUMAB
     Dosage: 300 MG, (PER APPLICATION)
     Route: 065
     Dates: start: 20160125
  2. COSENTYX [Suspect]
     Active Substance: SECUKINUMAB
     Dosage: 300 MG, (PER APPLICATION)
     Route: 065
     Dates: start: 20160208
  3. COSENTYX [Suspect]
     Active Substance: SECUKINUMAB
     Dosage: 300 MG, (PER APPLICATION)
     Route: 065
     Dates: start: 20160511
  4. COSENTYX [Suspect]
     Active Substance: SECUKINUMAB
     Dosage: 300 MG, (PER APPLICATION)
     Route: 065
     Dates: start: 20160215
  5. COSENTYX [Suspect]
     Active Substance: SECUKINUMAB
     Dosage: 300 MG, (PER APPLICATION)
     Route: 065
     Dates: start: 20160314
  6. BETAMETHASONE VALERATE. [Concomitant]
     Active Substance: BETAMETHASONE VALERATE
     Indication: PSORIASIS
     Dosage: 2 DF, QD
     Route: 061
     Dates: start: 20160606
  7. METROCREME [Concomitant]
     Indication: ROSACEA
     Dosage: UNK UNK, PRN
     Route: 061
     Dates: start: 20111130
  8. COSENTYX [Suspect]
     Active Substance: SECUKINUMAB
     Dosage: 300 MG, (PER APPLICATION)
     Route: 065
     Dates: start: 20160201
  9. COSENTYX [Suspect]
     Active Substance: SECUKINUMAB
     Dosage: 300 MG, (PER APPLICATION)
     Route: 065
     Dates: start: 20160411
  10. COSENTYX [Suspect]
     Active Substance: SECUKINUMAB
     Indication: PSORIASIS
     Dosage: 300 MG, (PER APPLICATION)
     Route: 065
     Dates: start: 20160119

REACTIONS (1)
  - Basal cell carcinoma [Recovered/Resolved]

NARRATIVE: CASE EVENT DATE: 20160606
